FAERS Safety Report 20656906 (Version 1)
Quarter: 2022Q1

REPORT INFORMATION
  Report Type: Spontaneous
  Country: CA (occurrence: CA)
  Receive Date: 20220331
  Receipt Date: 20220331
  Transmission Date: 20220423
  Serious: Yes (Hospitalization)
  Sender: FDA-Public Use
  Company Number: CA-CELLTRION INC.-2022CA003709

PATIENT

DRUGS (4)
  1. INFLECTRA [Suspect]
     Active Substance: INFLIXIMAB-DYYB
     Indication: Crohn^s disease
     Dosage: 400 MG 1 EVERY 8 WEEKS
     Route: 042
  2. INFLECTRA [Suspect]
     Active Substance: INFLIXIMAB-DYYB
     Dosage: 400 MG 1 EVERY 8 WEEKS
     Route: 042
  3. PENTASA [Suspect]
     Active Substance: MESALAMINE
     Indication: Colitis
     Route: 065
  4. PREDNISONE [Concomitant]
     Active Substance: PREDNISONE

REACTIONS (15)
  - Abdominal pain [Unknown]
  - Asthenia [Unknown]
  - Colitis [Unknown]
  - Colonic fistula [Unknown]
  - Crohn^s disease [Unknown]
  - Decreased appetite [Unknown]
  - Diverticulitis [Unknown]
  - Diverticulum [Unknown]
  - Faecal calprotectin increased [Unknown]
  - Inflammatory bowel disease [Unknown]
  - Large intestinal stenosis [Unknown]
  - Pseudopolyposis [Unknown]
  - Weight increased [Unknown]
  - Off label use [Unknown]
  - Product use in unapproved indication [Unknown]
